FAERS Safety Report 5165578-1 (Version None)
Quarter: 2006Q4

REPORT INFORMATION
  Report Type: 
  Country: None (occurrence: None)
  Receive Date: 20061206
  Receipt Date: 20060601
  Transmission Date: 20070319
  Serious: Yes (Other)
  Sender: FDA-Public Use
  Company Number: FR-GLAXOSMITHKLINE-B0426328A

PATIENT
  Age: 30 Year
  Sex: Female

DRUGS (2)
  1. DEROXAT [Suspect]
     Indication: DEPRESSION
     Dosage: 20MG PER DAY
     Route: 048
     Dates: start: 20060501
  2. LEXOMIL [Concomitant]

REACTIONS (8)
  - ANXIETY [None]
  - CLONUS [None]
  - DIZZINESS [None]
  - FATIGUE [None]
  - FEELING COLD [None]
  - HEADACHE [None]
  - SEROTONIN SYNDROME [None]
  - TREMOR [None]
